FAERS Safety Report 11789866 (Version 5)
Quarter: 2016Q4

REPORT INFORMATION
  Report Type: Spontaneous
  Country: US (occurrence: US)
  Receive Date: 20151201
  Receipt Date: 20161221
  Transmission Date: 20170206
  Serious: Yes (Other)
  Sender: FDA-Public Use
  Company Number: US-009507513-1511USA009887

PATIENT
  Sex: Female
  Weight: 63.49 kg

DRUGS (1)
  1. IMPLANON [Suspect]
     Active Substance: ETONOGESTREL
     Indication: CONTRACEPTION
     Dosage: 1 IMPLANT/ 3 YEARS
     Route: 058
     Dates: start: 20121017, end: 20150702

REACTIONS (11)
  - General anaesthesia [Recovered/Resolved]
  - Migration of implanted drug [Recovered/Resolved]
  - Complication of device removal [Recovered/Resolved]
  - Anxiety [Unknown]
  - Depression [Unknown]
  - Difficulty removing drug implant [Recovered/Resolved]
  - Complication associated with device [Recovered/Resolved]
  - Weight increased [Unknown]
  - Device difficult to use [Recovered/Resolved]
  - Hyperaesthesia [Unknown]
  - Myalgia [Recovered/Resolved]

NARRATIVE: CASE EVENT DATE: 201504
